FAERS Safety Report 15269502 (Version 1)
Quarter: 2018Q3

REPORT INFORMATION
  Report Type: Spontaneous
  Country: JP (occurrence: JP)
  Receive Date: 20180813
  Receipt Date: 20180813
  Transmission Date: 20181010
  Serious: Yes (Other)
  Sender: FDA-Public Use
  Company Number: JP-SUN PHARMACEUTICAL INDUSTRIES LTD-2018R1-181153

PATIENT
  Age: 82 Year
  Sex: Female

DRUGS (1)
  1. ISOSORBIDE. [Suspect]
     Active Substance: ISOSORBIDE
     Indication: CARDIAC FAILURE ACUTE
     Dosage: UNK
     Route: 065

REACTIONS (1)
  - Drug ineffective [Unknown]
